FAERS Safety Report 17070747 (Version 3)
Quarter: 2020Q1

REPORT INFORMATION
  Report Type: Spontaneous
  Country: JP (occurrence: JP)
  Receive Date: 20191125
  Receipt Date: 20200324
  Transmission Date: 20200409
  Serious: Yes (Disabling, Other)
  Sender: FDA-Public Use
  Company Number: JP-PFIZER INC-2019503276

PATIENT
  Age: 64 Year
  Sex: Male

DRUGS (7)
  1. INLYTA [Suspect]
     Active Substance: AXITINIB
     Dosage: 5 MG, 1X/DAY
     Route: 048
     Dates: start: 20191028, end: 20191031
  2. INLYTA [Suspect]
     Active Substance: AXITINIB
     Dosage: 6 MG, 2X/DAY
     Route: 048
     Dates: start: 20190823, end: 20190905
  3. INLYTA [Suspect]
     Active Substance: AXITINIB
     Indication: RENAL CELL CARCINOMA
     Dosage: 5 MG, 2X/DAY
     Route: 048
     Dates: start: 20190723, end: 20190822
  4. INLYTA [Suspect]
     Active Substance: AXITINIB
     Dosage: 6 MG, 1X/DAY
     Route: 048
     Dates: start: 20191101, end: 20191206
  5. TOPILORIC [Concomitant]
     Active Substance: TOPIROXOSTAT
     Dosage: UNK, AS NEEDED
  6. LOXONIN [Concomitant]
     Active Substance: LOXOPROFEN SODIUM
     Dosage: UNK, AS NEEDED
  7. INLYTA [Suspect]
     Active Substance: AXITINIB
     Dosage: 5 MG, 2X/DAY
     Route: 048
     Dates: start: 20190906, end: 20191027

REACTIONS (11)
  - Renal impairment [Recovering/Resolving]
  - Blood lactate dehydrogenase increased [Unknown]
  - Eosinophil count increased [Unknown]
  - Blood alkaline phosphatase increased [Unknown]
  - Blood creatine increased [Unknown]
  - Blood chloride increased [Unknown]
  - White blood cell count increased [Unknown]
  - C-reactive protein increased [Unknown]
  - Red blood cell count increased [Unknown]
  - Blood urea increased [Unknown]
  - Haematocrit decreased [Unknown]

NARRATIVE: CASE EVENT DATE: 20190723
